FAERS Safety Report 7536412-7 (Version None)
Quarter: 2011Q2

REPORT INFORMATION
  Report Type: 
  Country: None (occurrence: None)
  Receive Date: 20110609
  Receipt Date: 20110525
  Transmission Date: 20111010
  Serious: Yes (Death, Hospitalization)
  Sender: FDA-Public Use
  Company Number: DE-JNJFOC-20110505822

PATIENT
  Sex: Male
  Weight: 90.2 kg

DRUGS (10)
  1. FOLSAN [Concomitant]
     Route: 048
     Dates: start: 20060302
  2. METHOTREXATE [Concomitant]
     Route: 048
     Dates: start: 20080616
  3. RAMIPRIL [Concomitant]
     Route: 048
     Dates: start: 20060428
  4. METHOTREXATE [Suspect]
     Indication: RHEUMATOID ARTHRITIS
     Route: 048
  5. ARAVA [Concomitant]
     Route: 048
     Dates: start: 20100504
  6. PREDNISOLONE [Concomitant]
     Route: 048
     Dates: start: 20100125
  7. GOLIMUMAB [Suspect]
     Indication: RHEUMATOID ARTHRITIS
     Route: 058
     Dates: start: 20110420
  8. GOLIMUMAB [Suspect]
     Route: 058
     Dates: start: 20060717
  9. PLACEBO [Suspect]
     Indication: RHEUMATOID ARTHRITIS
     Route: 048
     Dates: start: 20060717
  10. HYDROCHLOROTHIAZIDE [Concomitant]
     Route: 048
     Dates: start: 20060502

REACTIONS (1)
  - BRONCHIAL CARCINOMA [None]
